FAERS Safety Report 11069893 (Version 1)
Quarter: 2015Q2

REPORT INFORMATION
  Report Type: Spontaneous
  Country: IT (occurrence: IT)
  Receive Date: 20150427
  Receipt Date: 20150427
  Transmission Date: 20150821
  Serious: Yes (Hospitalization)
  Sender: FDA-Public Use
  Company Number: IT-ROCHE-1567941

PATIENT
  Age: 72 Year
  Sex: Male

DRUGS (10)
  1. MESTINON [Concomitant]
     Active Substance: PYRIDOSTIGMINE BROMIDE
     Dosage: 60 MG TABLETS 20 TABLETS
     Route: 048
  2. DELTACORTENE [Concomitant]
     Active Substance: PREDNISONE
     Dosage: 5 MG TABLETS 10 TABLETS
     Route: 048
  3. MEPRAL [Concomitant]
     Active Substance: OMEPRAZOLE SODIUM
     Route: 065
  4. LORAZEPAM. [Concomitant]
     Active Substance: LORAZEPAM
     Route: 065
  5. SAMYR [Concomitant]
     Active Substance: METHIONINE
     Dosage: 400 MG GASTRO-RESISTANT TABLETS 20 TABLETS
     Route: 048
  6. DIBASE [Concomitant]
     Active Substance: CHOLECALCIFEROL
     Route: 065
  7. SOVALDI [Suspect]
     Active Substance: SOFOSBUVIR
     Indication: CHRONIC HEPATITIS C
     Dosage: 400 MG - FILM-COATED TABLET 28 TABLETS
     Route: 048
  8. MESTINON [Concomitant]
     Active Substance: PYRIDOSTIGMINE BROMIDE
     Dosage: 180 MG EXTENDED-RELEASE TABLET 50 TABLETS
     Route: 048
  9. COPEGUS [Suspect]
     Active Substance: RIBAVIRIN
     Indication: HEPATITIS C
     Dosage: 168 X 200 MG FILM-COATED TABLETS
     Route: 048
     Dates: start: 20150225, end: 20150302
  10. BONVIVA [Concomitant]
     Active Substance: IBANDRONATE SODIUM
     Route: 065

REACTIONS (6)
  - Asthenia [Recovering/Resolving]
  - Eyelid ptosis [Recovering/Resolving]
  - Myasthenia gravis [Recovering/Resolving]
  - Diplopia [Recovering/Resolving]
  - Dysarthria [Recovering/Resolving]
  - Dysphagia [Recovering/Resolving]

NARRATIVE: CASE EVENT DATE: 20150302
